FAERS Safety Report 23037309 (Version 1)
Quarter: 2023Q4

REPORT INFORMATION
  Report Type: Spontaneous
  Country: US (occurrence: US)
  Receive Date: 20231006
  Receipt Date: 20231006
  Transmission Date: 20240109
  Serious: Yes (Other)
  Sender: FDA-Public Use
  Company Number: US-OPELLA-2023OHG007399

PATIENT
  Sex: Female

DRUGS (1)
  1. TALC [Suspect]
     Active Substance: TALC

REACTIONS (2)
  - Mesothelioma [Unknown]
  - Exposure to chemical pollution [Unknown]
